FAERS Safety Report 13865994 (Version 1)
Quarter: 2017Q3

REPORT INFORMATION
  Report Type: Spontaneous
  Country: US (occurrence: US)
  Receive Date: 20170814
  Receipt Date: 20170814
  Transmission Date: 20171127
  Serious: No
  Sender: FDA-Public Use
  Company Number: US-MALLINCKRODT-T201701386

PATIENT
  Sex: Female

DRUGS (1)
  1. MORPHINE [Suspect]
     Active Substance: MORPHINE
     Indication: PRODUCT USED FOR UNKNOWN INDICATION
     Dosage: 2 PER DAY
     Route: 065

REACTIONS (1)
  - Wrong technique in product usage process [Unknown]

NARRATIVE: CASE EVENT DATE: 2014
